FAERS Safety Report 9192049 (Version 1)
Quarter: 2013Q1

REPORT INFORMATION
  Report Type: Spontaneous
  Country: US (occurrence: None)
  Receive Date: 20130325
  Receipt Date: 20130325
  Transmission Date: 20140127
  Serious: Yes (Death)
  Sender: FDA-Public Use
  Company Number: FK201300822

PATIENT
  Age: 34 Year
  Sex: Female

DRUGS (11)
  1. MORPHINE SULFATE INJECTION (MANUFACTURER UNKNOWN) (MORPHINE SULFATE) (MORPHINE SULFATE) [Suspect]
     Indication: PAIN
  2. MEDI-551 [Suspect]
     Indication: RELAPSING-REMITTING MULTIPLE SCLEROSIS
  3. WARFARIN (WARFARIN) [Suspect]
     Indication: FACTOR V LEIDEN MUTATION
  4. SERTRALINE HYDROCHLORIDE (SERTRALINE HYDROCHLORIDE) [Suspect]
     Indication: PRODUCT USED FOR UNKNOWN INDICATION
  5. HYDROCODONE (HYDROCODONE) [Suspect]
     Indication: PRODUCT USED FOR UNKNOWN INDICATION
  6. TRAZODONE HYDROCHLORIDE (TRAZODONE HYDROCHLORIDE) [Suspect]
     Indication: PRODUCT USED FOR UNKNOWN INDICATION
  7. OMEPRAZOLE (OMEPRAZOLE) [Concomitant]
  8. SALBUTAMOL (SALBUTAMOL) [Concomitant]
  9. BETAMETHASONE DIPROPIONATE (BETAMETHASONE DIPROPIONATE) [Concomitant]
  10. OXYCODONE (OXYCODONE) [Concomitant]
  11. PARACETAMOL (PARACETAMOL) [Concomitant]

REACTIONS (3)
  - Toxicity to various agents [None]
  - Accidental overdose [None]
  - Neutrophil count decreased [None]
